FAERS Safety Report 17467495 (Version 2)
Quarter: 2020Q1

REPORT INFORMATION
  Report Type: Spontaneous
  Country: US (occurrence: US)
  Receive Date: 20200227
  Receipt Date: 20200317
  Transmission Date: 20200409
  Serious: No
  Sender: FDA-Public Use
  Company Number: US-PFIZER INC-2020086661

PATIENT
  Age: 59 Year
  Sex: Female
  Weight: 86.17 kg

DRUGS (21)
  1. LAMOTRIGINE. [Concomitant]
     Active Substance: LAMOTRIGINE
     Indication: HEAD DISCOMFORT
     Dosage: 100 MG, 1X/DAY
     Dates: start: 2017
  2. MONTELUKAST [Concomitant]
     Active Substance: MONTELUKAST SODIUM
     Indication: ASTHMA
     Dosage: 10 MG, 1X/DAY
     Dates: start: 2009
  3. LAMOTRIGINE. [Concomitant]
     Active Substance: LAMOTRIGINE
     Dosage: 150 MG, 1X/DAY
     Dates: start: 2017
  4. DEXILANT [Concomitant]
     Active Substance: DEXLANSOPRAZOLE
     Indication: GASTROOESOPHAGEAL REFLUX DISEASE
     Dosage: 60 MG, 1X/DAY
     Dates: start: 2019
  5. LORATADINE. [Concomitant]
     Active Substance: LORATADINE
     Indication: HYPERSENSITIVITY
     Dosage: 10 MG, 1X/DAY
     Dates: start: 2018
  6. RISPERIDONE. [Concomitant]
     Active Substance: RISPERIDONE
     Indication: BIPOLAR DISORDER
  7. GABAPENTIN. [Suspect]
     Active Substance: GABAPENTIN
     Indication: BONE PAIN
     Dosage: 300 MG, 3X/DAY
     Dates: start: 2015
  8. PERCOCET [Concomitant]
     Active Substance: ACETAMINOPHEN\OXYCODONE HYDROCHLORIDE
     Indication: PAIN
     Dosage: 1 DF, UNK (1 DF = 10/325, 3-4 X DAY)
     Dates: start: 2019
  9. ASA [Concomitant]
     Active Substance: ASPIRIN
     Indication: BLOOD PRESSURE ABNORMAL
     Dosage: 81 MG, 1X/DAY
     Dates: start: 2017
  10. SUDAFED [Concomitant]
     Active Substance: PSEUDOEPHEDRINE HYDROCHLORIDE
     Indication: HYPERSENSITIVITY
     Dosage: 10 MG, 2X/DAY
     Dates: start: 2019
  11. SERTRALINE [Concomitant]
     Active Substance: SERTRALINE HYDROCHLORIDE
     Indication: HEAD DISCOMFORT
     Dosage: 100 MG, 1X/DAY
     Dates: start: 2019
  12. AMLODIPINE BESYLATE. [Concomitant]
     Active Substance: AMLODIPINE BESYLATE
     Indication: BLOOD PRESSURE ABNORMAL
     Dosage: 10 MG, 1X/DAY
     Dates: start: 2018
  13. FAMOTIDINE. [Concomitant]
     Active Substance: FAMOTIDINE
     Indication: GASTROOESOPHAGEAL REFLUX DISEASE
     Dosage: 40 MG, 1X/DAY
     Dates: start: 2019
  14. TRIAMTERENE HCTZ [Concomitant]
     Active Substance: HYDROCHLOROTHIAZIDE\TRIAMTERENE
     Indication: BLOOD PRESSURE ABNORMAL
     Dosage: UNK UNK, 1X/DAY [HYDROCHLOROTHIAZIDE-37.5MG AND TRIAMTERENE-.5-25MG]
     Dates: start: 2017
  15. VITAMIN D [COLECALCIFEROL] [Concomitant]
     Active Substance: CHOLECALCIFEROL
     Indication: SUPPLEMENTATION THERAPY
     Dosage: 125 MG, 2X/WEEK
     Dates: start: 2020
  16. ATORVASTATIN [Concomitant]
     Active Substance: ATORVASTATIN
     Indication: BLOOD CHOLESTEROL ABNORMAL
     Dosage: 40 MG, 1X/DAY
     Dates: start: 2017
  17. RISPERIDONE. [Concomitant]
     Active Substance: RISPERIDONE
     Indication: MENTAL DISORDER
     Dosage: 3 MG, 1X/DAY
     Dates: start: 2018
  18. POTASSIUM CHLORIDE. [Concomitant]
     Active Substance: POTASSIUM CHLORIDE
     Indication: FLUID RETENTION
     Dosage: 20 MEQ, 3X/DAY
     Dates: start: 2018
  19. DOXYCYCLINE HYCLATE. [Concomitant]
     Active Substance: DOXYCYCLINE HYCLATE
     Indication: SPINAL CORD INFECTION
     Dosage: 100 MG, 2X/DAY
     Dates: start: 2017
  20. FUROSEMIDE. [Concomitant]
     Active Substance: FUROSEMIDE
     Indication: FLUID RETENTION
     Dosage: 40 MG, 3X/DAY
     Dates: start: 2018
  21. BUPROPION HYDROCHLORIDE XL [Concomitant]
     Active Substance: BUPROPION HYDROCHLORIDE
     Indication: HEAD DISCOMFORT
     Dosage: 15 MG, 1X/DAY
     Dates: start: 2019

REACTIONS (3)
  - Alopecia [Not Recovered/Not Resolved]
  - Off label use [Unknown]
  - Product use in unapproved indication [Unknown]

NARRATIVE: CASE EVENT DATE: 2015
